FAERS Safety Report 6902437-5 (Version None)
Quarter: 2010Q3

REPORT INFORMATION
  Report Type: 
  Country: None (occurrence: None)
  Receive Date: 20100803
  Receipt Date: 20080528
  Transmission Date: 20110219
  Serious: No
  Sender: FDA-Public Use
  Company Number: US-PFIZER INC-2008046246

PATIENT
  Age: 55 Year
  Sex: Female
  Weight: 48.6 kg

DRUGS (5)
  1. LYRICA [Suspect]
     Indication: FIBROMYALGIA
     Route: 048
     Dates: start: 20080521
  2. AMBIEN [Concomitant]
  3. ATIVAN [Concomitant]
  4. LEVOXYL [Concomitant]
  5. ULTRAM [Concomitant]

REACTIONS (1)
  - DIZZINESS [None]
